FAERS Safety Report 5587774-1 (Version None)
Quarter: 2007Q4

REPORT INFORMATION
  Report Type: 
  Country: None (occurrence: None)
  Receive Date: 20071205
  Receipt Date: 20061211
  Transmission Date: 20080405
  Serious: Yes (Hospitalization)
  Sender: FDA-Public Use
  Company Number: E3810-00508-SPO-US

PATIENT
  Age: 78 Year
  Sex: Female
  Weight: 73 kg

DRUGS (5)
  1. ACIPHEX [Suspect]
     Dosage: ORAL ; ORAL
     Route: 048
     Dates: end: 20061201
  2. ACIPHEX [Suspect]
     Dosage: ORAL ; ORAL
     Route: 048
     Dates: start: 20040101
  3. VALSARTAN [Concomitant]
  4. BUSPIRONE HCL [Concomitant]
  5. CLAVINEX (AMOXICILLIN W/CLAVULANATE POTASSIUM) [Concomitant]

REACTIONS (1)
  - RASH [None]
